FAERS Safety Report 18256715 (Version 5)
Quarter: 2020Q4

REPORT INFORMATION
  Report Type: Spontaneous
  Country: US (occurrence: US)
  Receive Date: 20200911
  Receipt Date: 20201223
  Transmission Date: 20210113
  Serious: Yes (Other)
  Sender: FDA-Public Use
  Company Number: US-SA-2020SA246807

PATIENT

DRUGS (2)
  1. DUPIXENT [Suspect]
     Active Substance: DUPILUMAB
     Dosage: 300 MG, QOW
     Route: 058
     Dates: start: 202008
  2. DUPIXENT [Suspect]
     Active Substance: DUPILUMAB
     Indication: PRODUCT USED FOR UNKNOWN INDICATION
     Dosage: 600 MG, 1X
     Route: 058
     Dates: start: 202008, end: 202008

REACTIONS (7)
  - Injection site reaction [Unknown]
  - Injection site pruritus [Unknown]
  - Nasal dryness [Unknown]
  - Oral herpes [Unknown]
  - Injection site rash [Unknown]
  - Kidney infection [Unknown]
  - Dry eye [Unknown]

NARRATIVE: CASE EVENT DATE: 2020
